FAERS Safety Report 7992770-0 (Version None)
Quarter: 2011Q4

REPORT INFORMATION
  Report Type: 
  Country: None (occurrence: None)
  Receive Date: 20111219
  Receipt Date: 20111007
  Transmission Date: 20120403
  Serious: No
  Sender: FDA-Public Use
  Company Number: US-ASTRAZENECA-2011SE52117

PATIENT
  Age: 64 Year
  Sex: Female
  Weight: 49.9 kg

DRUGS (2)
  1. PLAVIX [Concomitant]
     Indication: ELECTROCARDIOGRAM ABNORMAL
  2. CRESTOR [Suspect]
     Indication: BLOOD CHOLESTEROL INCREASED
     Route: 048

REACTIONS (1)
  - DYSKINESIA [None]
